FAERS Safety Report 23410521 (Version 1)
Quarter: 2024Q1

REPORT INFORMATION
  Report Type: Spontaneous
  Country: US (occurrence: None)
  Receive Date: 20240116
  Receipt Date: 20240116
  Transmission Date: 20240410
  Serious: No
  Sender: FDA-Public Use
  Company Number: None

PATIENT
  Age: 62 Year
  Sex: Female
  Weight: 88.45 kg

DRUGS (1)
  1. SKYRIZI [Suspect]
     Active Substance: RISANKIZUMAB-RZAA
     Indication: Crohn^s disease
     Dosage: INJECT 180MG SUBCUTANEOUSLY USING THE ON BODY INJECTOR  EVERY B WEEKS AS DIRECTED.    ?
     Route: 058
     Dates: start: 202305

REACTIONS (3)
  - COVID-19 [None]
  - Sinusitis [None]
  - Product use issue [None]
